FAERS Safety Report 23822735 (Version 1)
Quarter: 2024Q2

REPORT INFORMATION
  Report Type: Spontaneous
  Country: RO (occurrence: RO)
  Receive Date: 20240506
  Receipt Date: 20240506
  Transmission Date: 20240716
  Serious: Yes (Death)
  Sender: FDA-Public Use
  Company Number: RO-ROCHE-1294611

PATIENT
  Age: 21 Year
  Sex: Female

DRUGS (22)
  1. NEVIRAPINE [Suspect]
     Active Substance: NEVIRAPINE
     Indication: HIV infection
     Dates: start: 2004
  2. STREPTOMYCIN [Suspect]
     Active Substance: STREPTOMYCIN SULFATE
     Indication: Tuberculosis
     Route: 065
  3. ETHAMBUTOL [Suspect]
     Active Substance: ETHAMBUTOL HYDROCHLORIDE
     Indication: Tuberculosis
     Dosage: RESTARTED
     Route: 065
  4. ETHAMBUTOL [Suspect]
     Active Substance: ETHAMBUTOL HYDROCHLORIDE
     Route: 065
  5. ETHAMBUTOL [Suspect]
     Active Substance: ETHAMBUTOL HYDROCHLORIDE
     Route: 065
  6. ISONIAZID [Suspect]
     Active Substance: ISONIAZID
     Indication: Tuberculosis
     Dosage: RESTARTED
     Route: 065
  7. ISONIAZID [Suspect]
     Active Substance: ISONIAZID
     Route: 065
  8. ISONIAZID [Suspect]
     Active Substance: ISONIAZID
     Route: 065
  9. LOPINAVIR\RITONAVIR [Suspect]
     Active Substance: LOPINAVIR\RITONAVIR
     Indication: HIV infection
     Route: 065
     Dates: start: 2005, end: 2011
  10. LOPINAVIR\RITONAVIR [Suspect]
     Active Substance: LOPINAVIR\RITONAVIR
     Route: 065
     Dates: start: 201101, end: 201104
  11. LOPINAVIR\RITONAVIR [Suspect]
     Active Substance: LOPINAVIR\RITONAVIR
     Route: 065
     Dates: start: 201104
  12. ENFUVIRTIDE [Suspect]
     Active Substance: ENFUVIRTIDE
     Indication: HIV infection
     Route: 065
     Dates: start: 201104
  13. PYRAZINAMIDE [Suspect]
     Active Substance: PYRAZINAMIDE
     Indication: Tuberculosis
     Dosage: RESTARTED
     Route: 065
  14. PYRAZINAMIDE [Suspect]
     Active Substance: PYRAZINAMIDE
     Route: 065
  15. PYRAZINAMIDE [Suspect]
     Active Substance: PYRAZINAMIDE
     Route: 065
  16. MYCOBUTIN [Suspect]
     Active Substance: RIFABUTIN
     Indication: Tuberculosis
     Route: 065
  17. MYCOBUTIN [Suspect]
     Active Substance: RIFABUTIN
     Dosage: RESTARTED
     Route: 065
  18. MYCOBUTIN [Suspect]
     Active Substance: RIFABUTIN
     Route: 065
  19. LAMIVUDINE\ZIDOVUDINE [Suspect]
     Active Substance: LAMIVUDINE\ZIDOVUDINE
     Indication: HIV infection
     Route: 065
     Dates: start: 2004
  20. LAMIVUDINE\ZIDOVUDINE [Suspect]
     Active Substance: LAMIVUDINE\ZIDOVUDINE
     Route: 065
     Dates: start: 201101, end: 201104
  21. LAMIVUDINE\ZIDOVUDINE [Suspect]
     Active Substance: LAMIVUDINE\ZIDOVUDINE
     Route: 065
     Dates: start: 2005, end: 2011
  22. LAMIVUDINE\ZIDOVUDINE [Suspect]
     Active Substance: LAMIVUDINE\ZIDOVUDINE
     Route: 065
     Dates: start: 201104

REACTIONS (8)
  - Tubulointerstitial nephritis [Fatal]
  - Cardiomyopathy [Fatal]
  - Chronic gastritis [Fatal]
  - Encephalitis [Fatal]
  - Pulmonary oedema [Fatal]
  - Tuberculoma of central nervous system [Fatal]
  - Disseminated tuberculosis [Fatal]
  - Maternal exposure before pregnancy [Unknown]
